FAERS Safety Report 11443369 (Version 2)
Quarter: 2015Q3

REPORT INFORMATION
  Report Type: Spontaneous
  Country: US (occurrence: US)
  Receive Date: 20150901
  Receipt Date: 20150908
  Transmission Date: 20151125
  Serious: Yes (Other)
  Sender: FDA-Public Use
  Company Number: US-TEVA-590081USA

PATIENT
  Sex: Male

DRUGS (2)
  1. NUVIGIL [Suspect]
     Active Substance: ARMODAFINIL
     Indication: NARCOLEPSY
     Route: 065
  2. MODAFINIL. [Concomitant]
     Active Substance: MODAFINIL
     Indication: NARCOLEPSY
     Dosage: 400MG IN AM  AND 200MG IN PM
     Route: 065

REACTIONS (5)
  - Wrong technique in product usage process [Unknown]
  - Mobility decreased [Unknown]
  - Paralysis [Unknown]
  - Activities of daily living impaired [Unknown]
  - Incorrect drug administration duration [Unknown]
